FAERS Safety Report 10424693 (Version 1)
Quarter: 2014Q3

REPORT INFORMATION
  Report Type: Spontaneous
  Country: US (occurrence: None)
  Receive Date: 20140725
  Receipt Date: 20140725
  Transmission Date: 20150326
  Serious: No
  Sender: FDA-Public Use
  Company Number: AP356-00947-SPO-US

PATIENT
  Age: 53 Year
  Sex: Female
  Weight: 89 kg

DRUGS (1)
  1. BELVIQ [Suspect]
     Active Substance: LORCASERIN HYDROCHLORIDE
     Indication: WEIGHT DECREASED
     Dosage: 10 MG IN AM/5 MG IN PM
     Route: 048
     Dates: start: 20140623, end: 20140623

REACTIONS (7)
  - Somnolence [None]
  - Intentional underdose [None]
  - Headache [None]
  - Bradyphrenia [None]
  - Dry mouth [None]
  - Fatigue [None]
  - Dizziness [None]

NARRATIVE: CASE EVENT DATE: 20140623
